FAERS Safety Report 24056831 (Version 4)
Quarter: 2024Q3

REPORT INFORMATION
  Report Type: Report from Study
  Country: ES (occurrence: ES)
  Receive Date: 20240706
  Receipt Date: 20240925
  Transmission Date: 20241016
  Serious: Yes (Hospitalization, Other)
  Sender: ABBVIE
  Company Number: ES-ABBVIE-5789241

PATIENT
  Sex: Male

DRUGS (3)
  1. CARBIDOPA\LEVODOPA [Suspect]
     Active Substance: CARBIDOPA\LEVODOPA
     Indication: Parkinson^s disease
     Route: 050
     Dates: start: 20211125
  2. CARBIDOPA\LEVODOPA [Suspect]
     Active Substance: CARBIDOPA\LEVODOPA
  3. FUROSEMIDE [Suspect]
     Active Substance: FUROSEMIDE
     Indication: Product used for unknown indication
     Route: 048
     Dates: start: 2024

REACTIONS (15)
  - Hospitalisation [Unknown]
  - Unevaluable event [Unknown]
  - Anaemia [Recovering/Resolving]
  - Abnormal dreams [Not Recovered/Not Resolved]
  - Hallucination, visual [Unknown]
  - Pain [Unknown]
  - Intermittent claudication [Not Recovered/Not Resolved]
  - Nightmare [Recovered/Resolved]
  - Amnesia [Not Recovered/Not Resolved]
  - Device issue [Unknown]
  - Hallucination [Recovered/Resolved]
  - Cognitive disorder [Unknown]
  - Pulmonary oedema [Recovering/Resolving]
  - Hallucination [Not Recovered/Not Resolved]
  - Pneumonia [Recovered/Resolved]

NARRATIVE: CASE EVENT DATE: 20240101
